FAERS Safety Report 5615306-8 (Version None)
Quarter: 2008Q1

REPORT INFORMATION
  Report Type: 
  Country: None (occurrence: None)
  Receive Date: 20080204
  Receipt Date: 20080204
  Transmission Date: 20080703
  Serious: Yes (Hospitalization)
  Sender: FDA-Public Use
  Company Number: None

PATIENT
  Age: 85 Year
  Sex: Male

DRUGS (1)
  1. CLINDAMYCIN HCL [Suspect]
     Indication: INFECTION
     Dosage: 300MG QID PO
     Route: 048
     Dates: start: 20071121, end: 20071126

REACTIONS (7)
  - ATRIOVENTRICULAR BLOCK FIRST DEGREE [None]
  - BRADYARRHYTHMIA [None]
  - COAGULOPATHY [None]
  - DRUG INTERACTION [None]
  - HEPATITIS ACUTE [None]
  - NAUSEA [None]
  - NODAL ARRHYTHMIA [None]
